FAERS Safety Report 6992065-8 (Version None)
Quarter: 2010Q3

REPORT INFORMATION
  Report Type: 
  Country: None (occurrence: None)
  Receive Date: 20100917
  Receipt Date: 20100819
  Transmission Date: 20110219
  Serious: Yes (Hospitalization)
  Sender: FDA-Public Use
  Company Number: US-BAYER-201018638NA

PATIENT
  Age: 20 Year
  Sex: Female
  Weight: 113 kg

DRUGS (19)
  1. YAZ [Suspect]
     Indication: CONTRACEPTION
     Route: 048
     Dates: start: 20080101, end: 20080301
  2. ADVIL LIQUI-GELS [Concomitant]
  3. HYDROCHLOROTHIAZIDE [Concomitant]
     Route: 065
     Dates: start: 20080220
  4. FLUCONAZOLE [Concomitant]
     Route: 065
     Dates: start: 20080103
  5. METRONIDAZOLE [Concomitant]
     Route: 065
     Dates: start: 20080220
  6. BUPROPION HCL [Concomitant]
  7. TOPAMAX [Concomitant]
     Route: 065
     Dates: start: 20080220
  8. WELLBUTRIN [Concomitant]
  9. HEPARIN [Concomitant]
  10. COUMADIN [Concomitant]
     Route: 065
     Dates: end: 20080801
  11. CYMBALTA [Concomitant]
     Route: 065
  12. VITAMIN K TAB [Concomitant]
     Route: 058
  13. NEXIUM [Concomitant]
     Route: 048
     Dates: start: 20080501
  14. LASIX [Concomitant]
     Route: 065
     Dates: start: 20080401
  15. K-DUR 20 MEQ [Concomitant]
     Route: 065
     Dates: start: 20080401
  16. LORTAB [Concomitant]
     Dosage: EVERY 6 HOURS AS NEEDED
     Route: 065
  17. FLUIDS IV [Concomitant]
  18. ZOFRAN [Concomitant]
     Route: 042
  19. VITAMIN AND MINERAL PRENATAL SUPPLEMENT W/ FOLIC ACID CAP [Concomitant]
     Dosage: DAILY
     Route: 065

REACTIONS (8)
  - ABDOMINAL PAIN UPPER [None]
  - CHOLECYSTITIS CHRONIC [None]
  - CYANOSIS [None]
  - DEEP VEIN THROMBOSIS [None]
  - FEELING HOT [None]
  - GALLBLADDER CHOLESTEROLOSIS [None]
  - OEDEMA PERIPHERAL [None]
  - PULMONARY EMBOLISM [None]
